FAERS Safety Report 12589568 (Version 5)
Quarter: 2016Q4

REPORT INFORMATION
  Report Type: Spontaneous
  Country: US (occurrence: US)
  Receive Date: 20160725
  Receipt Date: 20161026
  Transmission Date: 20170207
  Serious: Yes (Hospitalization)
  Sender: FDA-Public Use
  Company Number: US-UNITED THERAPEUTICS-UNT-2016-011170

PATIENT
  Age: 68 Year
  Sex: Female
  Weight: 61.22 kg

DRUGS (5)
  1. ORENITRAM [Suspect]
     Active Substance: TREPROSTINIL
     Dosage: UNK
     Route: 048
  2. TRACLEER [Concomitant]
     Active Substance: BOSENTAN
     Indication: PRODUCT USED FOR UNKNOWN INDICATION
  3. ADCIRCA [Concomitant]
     Active Substance: TADALAFIL
     Indication: PRODUCT USED FOR UNKNOWN INDICATION
  4. ORENITRAM [Suspect]
     Active Substance: TREPROSTINIL
     Indication: PULMONARY ARTERIAL HYPERTENSION
     Dosage: 2.5 MG, BID
     Route: 048
     Dates: start: 20141124
  5. ORENITRAM [Suspect]
     Active Substance: TREPROSTINIL
     Dosage: 2.125 MG, BID
     Route: 048

REACTIONS (5)
  - Diarrhoea [Not Recovered/Not Resolved]
  - Hypotension [Recovered/Resolved]
  - Vomiting [Recovered/Resolved]
  - Atrial fibrillation [Not Recovered/Not Resolved]
  - Chest pain [Recovered/Resolved]

NARRATIVE: CASE EVENT DATE: 2014
